FAERS Safety Report 7618655-7 (Version None)
Quarter: 2011Q3

REPORT INFORMATION
  Report Type: 
  Country: None (occurrence: None)
  Receive Date: 20110718
  Receipt Date: 20110712
  Transmission Date: 20111222
  Serious: Yes (Hospitalization)
  Sender: FDA-Public Use
  Company Number: JP-ABBOTT-10P-087-0665010-00

PATIENT
  Sex: Male

DRUGS (4)
  1. REYATAZ [Concomitant]
     Indication: HIV INFECTION
     Route: 048
     Dates: start: 20081010, end: 20100324
  2. ISENTRESS [Concomitant]
     Indication: HIV INFECTION
     Route: 048
     Dates: start: 20100325
  3. NORVIR [Suspect]
     Indication: HIV INFECTION
     Route: 048
     Dates: start: 20081001, end: 20100324
  4. EPZICOM [Concomitant]
     Indication: HIV INFECTION
     Route: 048
     Dates: start: 20090123

REACTIONS (3)
  - HELICOBACTER INFECTION [None]
  - DUODENAL ULCER [None]
  - HAEMORRHAGIC ANAEMIA [None]
